FAERS Safety Report 7326741-4 (Version None)
Quarter: 2011Q1

REPORT INFORMATION
  Report Type: 
  Country: None (occurrence: None)
  Receive Date: 20110302
  Receipt Date: 20100222
  Transmission Date: 20110831
  Serious: Yes (Hospitalization, Other)
  Sender: FDA-Public Use
  Company Number: US-PFIZER INC-2007044370

PATIENT
  Sex: Female
  Weight: 72 kg

DRUGS (1)
  1. DILANTIN [Suspect]
     Indication: CONVULSION
     Dosage: 100 MG, 3X/DAY
     Route: 048
     Dates: start: 20010401, end: 20010603

REACTIONS (2)
  - TOXICITY TO VARIOUS AGENTS [None]
  - STEVENS-JOHNSON SYNDROME [None]
